FAERS Safety Report 23785885 (Version 1)
Quarter: 2024Q2

REPORT INFORMATION
  Report Type: Spontaneous
  Country: DE (occurrence: DE)
  Receive Date: 20240425
  Receipt Date: 20240425
  Transmission Date: 20240715
  Serious: Yes (Death)
  Sender: FDA-Public Use
  Company Number: None

PATIENT
  Age: 55 Year
  Sex: Female
  Weight: 53 kg

DRUGS (2)
  1. UPADACITINIB [Suspect]
     Active Substance: UPADACITINIB
     Indication: Autoimmune hepatitis
     Dosage: CASE OF PROGRESSIVE ANEMIA DOSE REDUCTION TO 30MG
     Route: 048
     Dates: start: 20240307, end: 20240314
  2. UPADACITINIB [Suspect]
     Active Substance: UPADACITINIB
     Indication: Autoimmune hepatitis
     Route: 048
     Dates: start: 20240111, end: 202403

REACTIONS (3)
  - Bronchopulmonary aspergillosis [Fatal]
  - Off label use [Unknown]
  - Acute on chronic liver failure [Fatal]

NARRATIVE: CASE EVENT DATE: 20240321
